FAERS Safety Report 13973254 (Version 3)
Quarter: 2018Q4

REPORT INFORMATION
  Report Type: Spontaneous
  Country: NL (occurrence: NL)
  Receive Date: 20170915
  Receipt Date: 20181231
  Transmission Date: 20190204
  Serious: Yes (Hospitalization)
  Sender: FDA-Public Use
  Company Number: NL-TEVA-806766ACC

PATIENT
  Age: 23 Year
  Sex: Male
  Weight: 70 kg

DRUGS (5)
  1. ONDANSETRON 8MG [Concomitant]
     Active Substance: ONDANSETRON
     Dosage: 1-2DD1
     Route: 065
  2. OXALIPLATINE [Suspect]
     Active Substance: OXALIPLATIN
     Indication: GASTROINTESTINAL CARCINOMA
     Route: 042
     Dates: start: 20160910, end: 20161110
  3. METOCLOPRAMIDE 10MG [Concomitant]
     Active Substance: METOCLOPRAMIDE
     Dosage: 1-3DD1
     Route: 065
  4. MACROGOL ELEKTROLYTEN [Concomitant]
     Dosage: 1-2DD1
     Route: 065
  5. OXALIPLATINE [Suspect]
     Active Substance: OXALIPLATIN
     Indication: GASTROINTESTINAL CARCINOMA

REACTIONS (1)
  - Cardiac arrest [Recovered/Resolved]

NARRATIVE: CASE EVENT DATE: 20161010
